FAERS Safety Report 11984386 (Version 2)
Quarter: 2016Q1

REPORT INFORMATION
  Report Type: Spontaneous
  Country: US (occurrence: US)
  Receive Date: 20160201
  Receipt Date: 20160210
  Transmission Date: 20160526
  Serious: Yes (Hospitalization, Other)
  Sender: FDA-Public Use
  Company Number: US-APOTEX-2016AP006019

PATIENT
  Age: 90 Year
  Sex: Male

DRUGS (2)
  1. AMIODARONE HYDROCHLORIDE. [Suspect]
     Active Substance: AMIODARONE HYDROCHLORIDE
     Indication: PRODUCT USED FOR UNKNOWN INDICATION
     Dosage: UNK
     Route: 065
  2. SIMVASTATIN. [Suspect]
     Active Substance: SIMVASTATIN
     Indication: PRODUCT USED FOR UNKNOWN INDICATION
     Dosage: UNK
     Route: 065

REACTIONS (9)
  - Hepatitis acute [Unknown]
  - Hypophagia [Unknown]
  - Hypertension [Unknown]
  - Respiratory symptom [Unknown]
  - Lethargy [Unknown]
  - Encephalopathy [Unknown]
  - Disseminated intravascular coagulation [Unknown]
  - Hypoxia [Unknown]
  - Confusional state [Unknown]
